FAERS Safety Report 10142705 (Version 3)
Quarter: 2014Q2

REPORT INFORMATION
  Report Type: Spontaneous
  Country: IT (occurrence: None)
  Receive Date: 20140425
  Receipt Date: 20140520
  Transmission Date: 20141212
  Serious: Yes (Other)
  Sender: FDA-Public Use
  Company Number: 2014AP002685

PATIENT
  Age: 48 Year
  Sex: Male

DRUGS (1)
  1. LEVOFLOXACIN [Suspect]
     Indication: URINARY TRACT INFECTION
     Dosage: 1 DF, SINGLE, ORAL
     Route: 048
     Dates: start: 20140310, end: 20140310

REACTIONS (4)
  - Hypersensitivity [None]
  - Throat tightness [None]
  - Eyelid oedema [None]
  - Lip oedema [None]
